FAERS Safety Report 7904698-2 (Version None)
Quarter: 2011Q4

REPORT INFORMATION
  Report Type: 
  Country: None (occurrence: None)
  Receive Date: 20111109
  Receipt Date: 20111101
  Transmission Date: 20120403
  Serious: Yes (Hospitalization)
  Sender: FDA-Public Use
  Company Number: JP-GLAXOSMITHKLINE-B0760030A

PATIENT
  Age: 53 Year
  Sex: Male

DRUGS (4)
  1. ZYPREXA [Concomitant]
     Route: 048
  2. UNKNOWN [Concomitant]
     Route: 048
  3. LAMICTAL [Suspect]
     Indication: BIPOLAR DISORDER
     Dosage: 100MG PER DAY
     Route: 048
     Dates: start: 20110920, end: 20111031
  4. CLONAZEPAM [Concomitant]
     Route: 048

REACTIONS (1)
  - SKIN DISORDER [None]
